FAERS Safety Report 4321025-0 (Version None)
Quarter: 2004Q1

REPORT INFORMATION
  Report Type: 
  Country: None (occurrence: None)
  Receive Date: 20040315
  Receipt Date: 20030731
  Transmission Date: 20041129
  Serious: Yes (Other)
  Sender: FDA-Public Use
  Company Number: PHEH2003US05783

PATIENT
  Age: 44 Year
  Sex: Female
  Weight: 113.4 kg

DRUGS (6)
  1. TRILEPTAL [Suspect]
     Indication: BIPOLAR DISORDER
     Dosage: 300 MG, BID, ORAL
     Route: 048
     Dates: start: 20021001
  2. BUSPAR [Concomitant]
  3. TRAZODONE HCL [Concomitant]
  4. KLONOPIN [Concomitant]
  5. LEVOXYL [Concomitant]
  6. SEROQUEL [Concomitant]

REACTIONS (5)
  - ATAXIA [None]
  - BLOOD SODIUM DECREASED [None]
  - COORDINATION ABNORMAL [None]
  - HEADACHE [None]
  - MENTAL IMPAIRMENT [None]
